FAERS Safety Report 8549889-5 (Version None)
Quarter: 2012Q3

REPORT INFORMATION
  Report Type: 
  Country: None (occurrence: None)
  Receive Date: 20120730
  Receipt Date: 20111216
  Transmission Date: 20120928
  Serious: No
  Sender: FDA-Public Use
  Company Number: US-GLAXOSMITHKLINE-A0958857A

PATIENT
  Age: 33 Year
  Sex: Female

DRUGS (1)
  1. SUMATRIPTAN SUCCINATE [Suspect]
     Indication: MIGRAINE
     Dosage: 100MG SINGLE DOSE
     Route: 065

REACTIONS (5)
  - HEADACHE [None]
  - DYSPNOEA [None]
  - FLUSHING [None]
  - SWOLLEN TONGUE [None]
  - VOMITING [None]
